FAERS Safety Report 9921305 (Version 1)
Quarter: 2014Q1

REPORT INFORMATION
  Report Type: Report from Study
  Country: JP (occurrence: JP)
  Receive Date: 20140225
  Receipt Date: 20140225
  Transmission Date: 20141002
  Serious: Yes (Death)
  Sender: FDA-Public Use
  Company Number: JP-ROCHE-1354871

PATIENT
  Age: 82 Year
  Sex: Female

DRUGS (3)
  1. ALTEPLASE [Suspect]
     Indication: EMBOLIC STROKE
     Route: 042
     Dates: start: 20120224, end: 20120224
  2. RADICUT [Suspect]
     Indication: EMBOLIC STROKE
     Route: 041
     Dates: start: 20120224, end: 20120225
  3. GLYCEOL [Concomitant]
     Route: 041
     Dates: start: 20120224, end: 20120225

REACTIONS (1)
  - Acute respiratory failure [Fatal]
